FAERS Safety Report 9037039 (Version 1)
Quarter: 2013Q1

REPORT INFORMATION
  Report Type: Report from Study
  Country: US (occurrence: US)
  Receive Date: 20130129
  Receipt Date: 20130129
  Transmission Date: 20140127
  Serious: No
  Sender: FDA-Public Use
  Company Number: US-ABBOTT-12P-163-0895825-00

PATIENT
  Age: 61 Year
  Sex: Male

DRUGS (9)
  1. HUMIRA 40 MG/0.8 ML PEN [Suspect]
     Indication: RHEUMATOID ARTHRITIS
     Dates: start: 200806
  2. INSULIN NOVALOG PEN [Concomitant]
     Indication: DIABETES MELLITUS
  3. PREDNISONE [Concomitant]
     Indication: RHEUMATOID ARTHRITIS
  4. CRESTOR [Concomitant]
     Indication: BLOOD CHOLESTEROL INCREASED
     Dosage: AT BEDTIME
  5. TRAMADOL [Concomitant]
     Indication: PAIN
  6. EYE DROP THAT STARTS WITH AN ^X^ [Concomitant]
     Indication: OCULAR HYPERTENSION
  7. ASA [Concomitant]
     Indication: PROPHYLAXIS
  8. SKELAXIN [Concomitant]
     Indication: MUSCLE SPASMS
  9. UNKNOWN MEDICATION [Concomitant]
     Indication: BLOOD CHOLESTEROL
     Dates: start: 2009

REACTIONS (4)
  - Toothache [Recovered/Resolved]
  - Toothache [Recovered/Resolved]
  - Tooth extraction [Recovered/Resolved]
  - Tooth disorder [Recovered/Resolved]
